FAERS Safety Report 10208625 (Version 1)
Quarter: 2014Q2

REPORT INFORMATION
  Report Type: Spontaneous
  Country: US (occurrence: None)
  Receive Date: 20140528
  Receipt Date: 20140528
  Transmission Date: 20141212
  Serious: No
  Sender: FDA-Public Use
  Company Number: None

PATIENT
  Age: 79 Year
  Sex: Male

DRUGS (20)
  1. HUMIRA [Suspect]
     Indication: PSORIASIS
     Route: 058
     Dates: start: 20140403
  2. EFFEXOR [Concomitant]
  3. FUORSEMIDE [Concomitant]
  4. PRIMIDONE [Concomitant]
  5. BENACAR [Concomitant]
  6. CLINAZOPANE [Concomitant]
  7. BYSTOLIC [Concomitant]
  8. NEFEDIPINE [Concomitant]
  9. FLOMAX [Concomitant]
  10. NEXIUM [Concomitant]
  11. FEXOFENADINE [Concomitant]
  12. ASPIRIN [Concomitant]
  13. MULTIVITAMIN [Concomitant]
  14. CEREFOLIN NAC TAB [Concomitant]
  15. FISH OIL [Concomitant]
  16. VITAMIN D [Concomitant]
  17. OPANA ER [Concomitant]
  18. OPANA [Concomitant]
  19. HYDRALAZINE [Concomitant]
  20. LIPITOR [Concomitant]

REACTIONS (1)
  - Drug hypersensitivity [None]
